FAERS Safety Report 5266353-X (Version None)
Quarter: 2007Q1

REPORT INFORMATION
  Report Type: 
  Country: None (occurrence: None)
  Receive Date: 20070315
  Receipt Date: 20070302
  Transmission Date: 20070707
  Serious: Yes (Other)
  Sender: FDA-Public Use
  Company Number: US-SANOFI-SYNTHELABO-A03200700570

PATIENT
  Age: 39 Year
  Sex: Female

DRUGS (2)
  1. AMBIEN [Suspect]
     Indication: INSOMNIA
     Dosage: FOUR 10 MG TABLETS TO START OFF WITH THEN BY THE NEXT DAY ALL 60 TABLETS WOULD BE GONE
     Route: 048
  2. AMBIEN [Suspect]
     Route: 048
     Dates: start: 19960101

REACTIONS (12)
  - ABNORMAL BEHAVIOUR [None]
  - AGGRESSION [None]
  - AMNESIA [None]
  - CONCUSSION [None]
  - DIPLOPIA [None]
  - DRUG ABUSER [None]
  - EMOTIONAL DISORDER [None]
  - EUPHORIC MOOD [None]
  - HALLUCINATION, VISUAL [None]
  - INTENTIONAL OVERDOSE [None]
  - ROAD TRAFFIC ACCIDENT [None]
  - SLEEP WALKING [None]
